FAERS Safety Report 9878091 (Version 3)
Quarter: 2014Q2

REPORT INFORMATION
  Report Type: Spontaneous
  Country: US (occurrence: US)
  Receive Date: 20140206
  Receipt Date: 20140416
  Transmission Date: 20141212
  Serious: No
  Sender: FDA-Public Use
  Company Number: US-009507513-1402USA000974

PATIENT
  Age: 79 Year
  Sex: Female
  Weight: 81.63 kg

DRUGS (3)
  1. OXYTROL FOR WOMEN [Suspect]
     Indication: INCONTINENCE
     Dosage: UNK, UNKNOWN
     Route: 062
     Dates: start: 201311, end: 201311
  2. SIMVASTATIN [Concomitant]
     Indication: BLOOD CHOLESTEROL INCREASED
     Dosage: 40 MG, UNKNOWN
  3. FENOFIBRATE [Concomitant]
     Indication: BLOOD TRIGLYCERIDES INCREASED
     Dosage: 25 MG, UNKNOWN

REACTIONS (6)
  - Dermatitis contact [Unknown]
  - Dermatitis allergic [Unknown]
  - Rash erythematous [Unknown]
  - Rash pruritic [Recovered/Resolved]
  - Drug administered at inappropriate site [Unknown]
  - Drug ineffective [Unknown]
